FAERS Safety Report 23233001 (Version 5)
Quarter: 2024Q2

REPORT INFORMATION
  Report Type: Spontaneous
  Country: US (occurrence: US)
  Receive Date: 20231128
  Receipt Date: 20240626
  Transmission Date: 20240716
  Serious: No
  Sender: FDA-Public Use
  Company Number: US-BRISTOL-MYERS SQUIBB COMPANY-2023-170813

PATIENT
  Age: 67 Year
  Sex: Female
  Weight: 78.47 kg

DRUGS (2)
  1. REVLIMID [Suspect]
     Active Substance: LENALIDOMIDE
     Indication: Plasma cell myeloma
     Route: 048
     Dates: start: 20231001
  2. REVLIMID [Suspect]
     Active Substance: LENALIDOMIDE

REACTIONS (12)
  - Constipation [Unknown]
  - Depression [Unknown]
  - White blood cell count decreased [Unknown]
  - Tremor [Unknown]
  - Diarrhoea [Unknown]
  - Platelet count decreased [Unknown]
  - Eye infection [Recovering/Resolving]
  - Nausea [Unknown]
  - Oropharyngeal pain [Unknown]
  - Fatigue [Recovering/Resolving]
  - Alopecia [Recovering/Resolving]
  - Neutrophil count decreased [Recovering/Resolving]
